FAERS Safety Report 14830793 (Version 1)
Quarter: 2018Q2

REPORT INFORMATION
  Report Type: Spontaneous
  Country: US (occurrence: US)
  Receive Date: 20180430
  Receipt Date: 20180430
  Transmission Date: 20180711
  Serious: No
  Sender: FDA-Public Use
  Company Number: US-BAUSCH-BL-2017-032190

PATIENT
  Sex: Male

DRUGS (1)
  1. ALREX [Suspect]
     Active Substance: LOTEPREDNOL ETABONATE
     Indication: ALLERGY TO PLANTS
     Route: 065
     Dates: end: 2017

REACTIONS (5)
  - Feeling hot [Recovered/Resolved]
  - Eye irritation [Recovered/Resolved]
  - Expired product administered [Unknown]
  - Ocular hyperaemia [Recovered/Resolved]
  - Visual impairment [Recovered/Resolved]

NARRATIVE: CASE EVENT DATE: 201709
